FAERS Safety Report 18750524 (Version 2)
Quarter: 2021Q1

REPORT INFORMATION
  Report Type: Report from Study
  Country: US (occurrence: US)
  Receive Date: 20210118
  Receipt Date: 20210205
  Transmission Date: 20210419
  Serious: Yes (Hospitalization)
  Sender: FDA-Public Use
  Company Number: US-SAREPTA THERAPEUTICS INC.-SRP2020-001209

PATIENT
  Age: 32 Year
  Sex: Male
  Weight: 50.79 kg

DRUGS (2)
  1. GOLODIRSEN. [Suspect]
     Active Substance: GOLODIRSEN
     Indication: DUCHENNE MUSCULAR DYSTROPHY
     Dosage: UNK, WEEKLY
     Route: 042
     Dates: start: 202004
  2. DIGOXIN. [Concomitant]
     Active Substance: DIGOXIN
     Indication: CARDIOMYOPATHY
     Dosage: UNK
     Route: 065

REACTIONS (1)
  - Atrioventricular block complete [Recovered/Resolved]

NARRATIVE: CASE EVENT DATE: 20201218
